FAERS Safety Report 21308271 (Version 1)
Quarter: 2022Q3

REPORT INFORMATION
  Report Type: Other
  Country: US (occurrence: None)
  Receive Date: 20220908
  Receipt Date: 20220908
  Transmission Date: 20221026
  Serious: Yes (Other)
  Sender: FDA-Public Use
  Company Number: US-ROCHE-2409547

PATIENT
  Age: 34 Year
  Sex: Female
  Weight: 113.50 kg

DRUGS (1)
  1. OCREVUS [Suspect]
     Active Substance: OCRELIZUMAB
     Indication: Relapsing-remitting multiple sclerosis
     Dosage: INFUSE 300 MG DAY 1 AND DAY 15; THEN 600 MG EVERY 168 DAYS?DATE OF TREATMENT:05/SEP/2019
     Route: 042
     Dates: start: 20190822

REACTIONS (19)
  - Multiple sclerosis [Unknown]
  - Photophobia [Recovered/Resolved]
  - Vision blurred [Not Recovered/Not Resolved]
  - Chest pain [Unknown]
  - Vertigo [Recovered/Resolved]
  - Dizziness [Recovered/Resolved]
  - Diplopia [Recovered/Resolved]
  - Memory impairment [Unknown]
  - Vitreous floaters [Recovered/Resolved]
  - COVID-19 [Recovered/Resolved]
  - Productive cough [Not Recovered/Not Resolved]
  - Visual impairment [Recovered/Resolved]
  - Vision blurred [Recovered/Resolved]
  - Heart rate irregular [Recovered/Resolved]
  - Temperature intolerance [Not Recovered/Not Resolved]
  - Humidity intolerance [Not Recovered/Not Resolved]
  - Asthenia [Not Recovered/Not Resolved]
  - Impaired driving ability [Not Recovered/Not Resolved]
  - Fall [Unknown]

NARRATIVE: CASE EVENT DATE: 20190825
